FAERS Safety Report 6701712-7 (Version None)
Quarter: 2010Q2

REPORT INFORMATION
  Report Type: 
  Country: None (occurrence: None)
  Receive Date: 20100427
  Receipt Date: 20100414
  Transmission Date: 20101027
  Serious: Yes (Hospitalization)
  Sender: FDA-Public Use
  Company Number: 8053270

PATIENT
  Sex: Female
  Weight: 61 kg

DRUGS (8)
  1. CERTOLIZUMAB PEGOL         (CERTOLIZUMAB PEGOL) [Suspect]
     Indication: RHEUMATOID ARTHRITIS
     Dosage: SEE IMAGE
     Route: 058
     Dates: start: 20050523, end: 20060509
  2. CERTOLIZUMAB PEGOL         (CERTOLIZUMAB PEGOL) [Suspect]
     Indication: RHEUMATOID ARTHRITIS
     Dosage: SEE IMAGE
     Route: 058
     Dates: start: 20060522, end: 20071119
  3. CERTOLIZUMAB PEGOL         (CERTOLIZUMAB PEGOL) [Suspect]
     Indication: RHEUMATOID ARTHRITIS
     Dosage: SEE IMAGE
     Route: 058
     Dates: start: 20071203, end: 20091005
  4. CERTOLIZUMAB PEGOL         (CERTOLIZUMAB PEGOL) [Suspect]
     Indication: RHEUMATOID ARTHRITIS
     Dosage: SEE IMAGE
     Route: 058
     Dates: start: 20091116
  5. METHOTHREXATE [Concomitant]
  6. FOLIC ACID [Concomitant]
  7. MELOXICAM [Concomitant]
  8. REGULON /00093201/ [Concomitant]

REACTIONS (6)
  - DRUG TOXICITY [None]
  - FOOT DEFORMITY [None]
  - GASTRODUODENITIS [None]
  - PHARYNGITIS [None]
  - POSTOPERATIVE WOUND INFECTION [None]
  - WOUND INFECTION STAPHYLOCOCCAL [None]
